FAERS Safety Report 20091568 (Version 1)
Quarter: 2021Q4

REPORT INFORMATION
  Report Type: Spontaneous
  Country: US (occurrence: None)
  Receive Date: 20211118
  Receipt Date: 20211118
  Transmission Date: 20220303
  Serious: Yes (Life-Threatening, Hospitalization, Disabling)
  Sender: FDA-Public Use
  Company Number: None

PATIENT
  Age: 24 Year
  Sex: Female
  Weight: 52.65 kg

DRUGS (1)
  1. MONTELUKAST [Suspect]
     Active Substance: MONTELUKAST SODIUM
     Indication: Seasonal allergy
     Dosage: FREQUENCY : DAILY;?
     Route: 048
     Dates: start: 20050101, end: 20211111

REACTIONS (13)
  - Mental disorder [None]
  - Quality of life decreased [None]
  - Suicidal behaviour [None]
  - Homicidal ideation [None]
  - Depression [None]
  - Confusional state [None]
  - Fatigue [None]
  - Post-traumatic stress disorder [None]
  - Generalised anxiety disorder [None]
  - Panic attack [None]
  - Hyperventilation [None]
  - Loss of consciousness [None]
  - Job dissatisfaction [None]

NARRATIVE: CASE EVENT DATE: 20050101
